FAERS Safety Report 15482708 (Version 1)
Quarter: 2018Q4

REPORT INFORMATION
  Report Type: Spontaneous
  Country: US (occurrence: US)
  Receive Date: 20181003
  Receipt Date: 20181003
  Transmission Date: 20190205
  Serious: Yes (Hospitalization)
  Sender: FDA-Public Use
  Company Number: None

PATIENT
  Age: 71 Year
  Sex: Male
  Weight: 112.13 kg

DRUGS (1)
  1. RIVAROXABAN [Suspect]
     Active Substance: RIVAROXABAN
     Indication: ATRIAL FIBRILLATION
     Dates: start: 20180601

REACTIONS (3)
  - Dyspnoea [None]
  - Therapy cessation [None]
  - Gastrointestinal haemorrhage [None]

NARRATIVE: CASE EVENT DATE: 20180613
